APPROVED DRUG PRODUCT: TIZANIDINE HYDROCHLORIDE
Active Ingredient: TIZANIDINE HYDROCHLORIDE
Strength: EQ 6MG BASE
Dosage Form/Route: CAPSULE;ORAL
Application: A212196 | Product #003 | TE Code: AB
Applicant: ALKEM LABORATORIES LTD
Approved: Mar 27, 2019 | RLD: No | RS: No | Type: RX